FAERS Safety Report 8018210-3 (Version None)
Quarter: 2011Q4

REPORT INFORMATION
  Report Type: 
  Country: None (occurrence: None)
  Receive Date: 20111227
  Receipt Date: 20111219
  Transmission Date: 20120403
  Serious: Yes (Hospitalization)
  Sender: FDA-Public Use
  Company Number: 2011SGN00202

PATIENT
  Age: 36 Year
  Sex: Male
  Weight: 94.3 kg

DRUGS (5)
  1. OXYCODONE HCL [Concomitant]
  2. BRENTUXIMAB VEDOTIN (BRENTUXIMAB VEDOTIN) INJECTION [Suspect]
     Indication: HODGKIN'S DISEASE
     Dosage: 1.2 MG/KG, Q21D, INTRAVENOUS
     Route: 042
     Dates: start: 20110818, end: 20110818
  3. LACTULOSE [Concomitant]
  4. BACLOFEN [Concomitant]
  5. NYSTATIN [Concomitant]

REACTIONS (16)
  - NEUTROPHIL COUNT DECREASED [None]
  - HYPERBILIRUBINAEMIA [None]
  - HICCUPS [None]
  - DECREASED APPETITE [None]
  - HEPATIC ENCEPHALOPATHY [None]
  - HEPATIC FAILURE [None]
  - DIARRHOEA [None]
  - HEPATIC STEATOSIS [None]
  - CONFUSIONAL STATE [None]
  - CHOLELITHIASIS [None]
  - BILE DUCT OBSTRUCTION [None]
  - JAUNDICE [None]
  - CYTOLYTIC HEPATITIS [None]
  - PANCREATIC PSEUDOCYST [None]
  - PANCREATITIS [None]
  - FATIGUE [None]
